FAERS Safety Report 9771017 (Version 2)
Quarter: 2013Q4

REPORT INFORMATION
  Report Type: Spontaneous
  Country: US (occurrence: US)
  Receive Date: 20131218
  Receipt Date: 20131218
  Transmission Date: 20140711
  Serious: Yes (Other)
  Sender: FDA-Public Use
  Company Number: US-UCBSA-098652

PATIENT
  Age: 76 Year
  Sex: Female
  Weight: 88.45 kg

DRUGS (12)
  1. NEUPRO [Suspect]
     Indication: PARKINSON^S DISEASE
     Dosage: UNKNOWN DOSE
     Dates: start: 201309
  2. NEUPRO [Suspect]
     Indication: RESTLESS LEGS SYNDROME
     Dosage: UNKNOWN DOSE
     Dates: start: 201309
  3. NEUPRO [Suspect]
     Indication: PARKINSON^S DISEASE
     Dosage: 2 MG PATCH
     Dates: start: 2013, end: 201308
  4. NEUPRO [Suspect]
     Indication: RESTLESS LEGS SYNDROME
     Dosage: 2 MG PATCH
     Dates: start: 2013, end: 201308
  5. NEUPRO [Suspect]
     Indication: PARKINSON^S DISEASE
     Dosage: 1 MG PATCH
     Dates: start: 2013, end: 2013
  6. NEUPRO [Suspect]
     Indication: RESTLESS LEGS SYNDROME
     Dosage: 1 MG PATCH
     Dates: start: 2013, end: 2013
  7. NEUPRO [Suspect]
     Indication: PARKINSON^S DISEASE
     Dosage: 2MG
     Route: 062
     Dates: start: 201304, end: 20130604
  8. NEUPRO [Suspect]
     Indication: RESTLESS LEGS SYNDROME
     Dosage: 2MG
     Route: 062
     Dates: start: 201304, end: 20130604
  9. TRIAMTERENE [Concomitant]
     Indication: OEDEMA
     Route: 048
     Dates: start: 2009
  10. VITAMIN B12 [Concomitant]
     Indication: NEUROPATHY PERIPHERAL
     Dosage: 1MG/MONTH
     Route: 030
     Dates: start: 2008
  11. GABAPENTIN [Concomitant]
     Indication: NEUROPATHY PERIPHERAL
     Route: 048
     Dates: start: 2011
  12. LISINOPRIL [Concomitant]
     Indication: HYPERTENSION
     Route: 048
     Dates: start: 2009

REACTIONS (3)
  - Application site vesicles [Recovered/Resolved]
  - Infection [Unknown]
  - Dermatitis contact [Unknown]
